FAERS Safety Report 4630767-9 (Version None)
Quarter: 2005Q2

REPORT INFORMATION
  Report Type: 
  Country: None (occurrence: None)
  Receive Date: 20050406
  Receipt Date: 20050317
  Transmission Date: 20051028
  Serious: Yes (Death)
  Sender: FDA-Public Use
  Company Number: USA050392304

PATIENT
  Age: 48 Year
  Sex: Male
  Weight: 85 kg

DRUGS (8)
  1. XIGRIS [Suspect]
     Indication: SEPSIS
     Dosage: 24 MG/KG/HR
     Dates: start: 20050216, end: 20050217
  2. VANCOMYCIN [Concomitant]
  3. DOPAMINE [Concomitant]
  4. NOREPINEPHRINE [Concomitant]
  5. EPOETIN ALFA [Concomitant]
  6. CARBAMAZEPINE [Concomitant]
  7. GLIPIZIDE [Concomitant]
  8. METOPROLOL TARTRATE [Concomitant]

REACTIONS (1)
  - MYOCARDIAL INFARCTION [None]
